FAERS Safety Report 19029139 (Version 1)
Quarter: 2021Q1

REPORT INFORMATION
  Report Type: Spontaneous
  Country: US (occurrence: US)
  Receive Date: 20210318
  Receipt Date: 20210318
  Transmission Date: 20210420
  Serious: Yes (Other)
  Sender: FDA-Public Use
  Company Number: US-TEVA-2021-US-1888829

PATIENT
  Age: 64 Year
  Sex: Female
  Weight: 83.91 kg

DRUGS (14)
  1. ALBUTEROL. [Suspect]
     Active Substance: ALBUTEROL
  2. ALBUTEROL. [Suspect]
     Active Substance: ALBUTEROL
  3. PROAIR HFA [Suspect]
     Active Substance: ALBUTEROL SULFATE
  4. PROAIR HFA [Suspect]
     Active Substance: ALBUTEROL SULFATE
  5. ADVAIR HFA [Suspect]
     Active Substance: FLUTICASONE PROPIONATE\SALMETEROL XINAFOATE
     Route: 065
  6. MULTIVITAMIN [Concomitant]
     Active Substance: VITAMINS
  7. CYMBALTA [Concomitant]
     Active Substance: DULOXETINE HYDROCHLORIDE
  8. ALBUTEROL. [Suspect]
     Active Substance: ALBUTEROL
     Route: 065
  9. ALBUTEROL. [Suspect]
     Active Substance: ALBUTEROL
  10. PROAIR HFA [Suspect]
     Active Substance: ALBUTEROL SULFATE
     Indication: ASTHMA
     Dosage: 2 PUFFS AS NEEDED (STATED SHE USES IT 3 TIMES A DAY)
     Route: 065
  11. ALBUTEROL. [Suspect]
     Active Substance: ALBUTEROL
  12. NAPROXEN. [Concomitant]
     Active Substance: NAPROXEN
  13. PROAIR HFA [Suspect]
     Active Substance: ALBUTEROL SULFATE
     Indication: CHRONIC OBSTRUCTIVE PULMONARY DISEASE
  14. PROAIR HFA [Suspect]
     Active Substance: ALBUTEROL SULFATE

REACTIONS (10)
  - Oral disorder [Not Recovered/Not Resolved]
  - Tongue discolouration [Not Recovered/Not Resolved]
  - Tongue erythema [Unknown]
  - Blindness unilateral [Unknown]
  - Dysgeusia [Not Recovered/Not Resolved]
  - Oral pain [Not Recovered/Not Resolved]
  - Memory impairment [Unknown]
  - Plicated tongue [Not Recovered/Not Resolved]
  - Taste disorder [Not Recovered/Not Resolved]
  - Tongue coated [Not Recovered/Not Resolved]

NARRATIVE: CASE EVENT DATE: 20210303
